FAERS Safety Report 4693173-7 (Version None)
Quarter: 2005Q2

REPORT INFORMATION
  Report Type: 
  Country: None (occurrence: None)
  Receive Date: 20050617
  Receipt Date: 20050502
  Transmission Date: 20051028
  Serious: Yes (Death)
  Sender: FDA-Public Use
  Company Number: US-SANOFI-SYNTHELABO-A03200501302

PATIENT
  Sex: Male

DRUGS (3)
  1. ELOXATIN [Suspect]
     Indication: COLON CANCER
     Route: 042
     Dates: start: 20050422, end: 20050422
  2. LEUCOVORIN CALCIUM [Concomitant]
     Indication: COLON CANCER
     Route: 042
     Dates: start: 20050422
  3. FLUOROURACIL [Concomitant]
     Indication: COLON CANCER
     Dosage: 750 MG IV BOLUS, FOLLOWED BY CONTINUOUS INFUSION OF 4500 MG
     Route: 042
     Dates: start: 20050422

REACTIONS (4)
  - CARDIOMEGALY [None]
  - CARDIOMYOPATHY [None]
  - DEATH [None]
  - SUDDEN DEATH [None]
